FAERS Safety Report 25806648 (Version 1)
Quarter: 2025Q3

REPORT INFORMATION
  Report Type: Spontaneous
  Country: CA (occurrence: CA)
  Receive Date: 20250916
  Receipt Date: 20250916
  Transmission Date: 20251020
  Serious: Yes (Death, Life-Threatening)
  Sender: TEVA
  Company Number: CA-TEVA-VS-3372149

PATIENT
  Age: 73 Year
  Sex: Female
  Weight: 44 kg

DRUGS (3)
  1. PACLITAXEL [Suspect]
     Active Substance: PACLITAXEL
     Indication: Non-small cell lung cancer
     Dosage: PACLITAXEL FOR INJECTION, DOSE FORM: SOLUTION INTRAVENOUS
     Route: 042
  2. PEMBROLIZUMAB [Concomitant]
     Active Substance: PEMBROLIZUMAB
     Indication: Product used for unknown indication
  3. CARBOPLATIN [Concomitant]
     Active Substance: CARBOPLATIN
     Indication: Product used for unknown indication

REACTIONS (3)
  - Acute respiratory failure [Fatal]
  - Endotracheal intubation [Fatal]
  - Cardio-respiratory arrest [Fatal]
